FAERS Safety Report 8570279-3 (Version None)
Quarter: 2012Q3

REPORT INFORMATION
  Report Type: 
  Country: None (occurrence: None)
  Receive Date: 20120803
  Receipt Date: 20120723
  Transmission Date: 20120928
  Serious: Yes (Other)
  Sender: FDA-Public Use
  Company Number: US-ROCHE-1026794

PATIENT
  Sex: Male

DRUGS (2)
  1. IPILIMUMAB [Suspect]
     Indication: METASTATIC MALIGNANT MELANOMA
  2. ZELBORAF [Suspect]
     Indication: METASTATIC MALIGNANT MELANOMA
     Dosage: UNKNOWN
     Route: 048
     Dates: start: 20110801

REACTIONS (15)
  - CHEST PAIN [None]
  - HYPOTENSION [None]
  - SQUAMOUS CELL CARCINOMA [None]
  - ADRENAL DISORDER [None]
  - DECREASED APPETITE [None]
  - NAUSEA [None]
  - DIARRHOEA [None]
  - VOMITING [None]
  - BLOOD CREATININE INCREASED [None]
  - SKIN PAPILLOMA [None]
  - RASH [None]
  - HEADACHE [None]
  - SKIN MASS [None]
  - FATIGUE [None]
  - MELANOCYTIC NAEVUS [None]
